FAERS Safety Report 10781362 (Version 17)
Quarter: 2016Q1

REPORT INFORMATION
  Report Type: Spontaneous
  Country: US (occurrence: US)
  Receive Date: 20150210
  Receipt Date: 20160331
  Transmission Date: 20160525
  Serious: Yes (Hospitalization, Other)
  Sender: FDA-Public Use
  Company Number: US-GLAXOSMITHKLINE-A1086931A

PATIENT
  Age: 37 Year
  Sex: Female

DRUGS (14)
  1. FLOLAN [Suspect]
     Active Substance: EPOPROSTENOL SODIUM
     Indication: PULMONARY ARTERIAL HYPERTENSION
     Dosage: 23 NG/KG/MIN CONTINUOUSLY AT CONCENTRATION 30,000 NG/ML, PUMP RATE 70 ML/DAY AND VIAL STRENGTH [...]
     Route: 042
     Dates: start: 20140609
  2. FLOLAN [Suspect]
     Active Substance: EPOPROSTENOL SODIUM
     Dosage: 24.6 NG/KG/MIN CONTINUOUS
     Route: 042
     Dates: start: 20140609
  3. COUMADIN [Concomitant]
     Active Substance: WARFARIN SODIUM
  4. FLOLAN [Suspect]
     Active Substance: EPOPROSTENOL SODIUM
     Dosage: 23 NG/KG/MIN CONTINUOUS; CONCENTRATION: 30,000 NG/ML; PUMP RATE: 70 ML/DAY; VIAL STRENGTH: 1.5 MG
     Route: 042
     Dates: start: 20140611
  5. FLOLAN [Suspect]
     Active Substance: EPOPROSTENOL SODIUM
     Dosage: 24.6 NG/KG/MIN, CO
  6. REVATIO [Concomitant]
     Active Substance: SILDENAFIL CITRATE
  7. WARFARIN [Concomitant]
     Active Substance: WARFARIN
  8. UPTRAVI [Concomitant]
     Active Substance: SELEXIPAG
  9. FLOLAN [Suspect]
     Active Substance: EPOPROSTENOL SODIUM
     Dosage: 23.6 NG/KG/MIN CONTINUOUS; VIAL STRENGTH: 1.5 MG
     Route: 042
     Dates: start: 20140609
  10. FLOLAN [Suspect]
     Active Substance: EPOPROSTENOL SODIUM
     Dosage: 24.2 NG/KG/MIN, CO
     Route: 042
  11. FLOLAN [Suspect]
     Active Substance: EPOPROSTENOL SODIUM
     Dosage: 24.6 NG/KG/MIN CONTINUOUS
     Route: 042
     Dates: start: 20140609
  12. FLOLAN [Suspect]
     Active Substance: EPOPROSTENOL SODIUM
     Dosage: 23 NG/KG/MIN, CO
     Route: 042
  13. FLOLAN [Suspect]
     Active Substance: EPOPROSTENOL SODIUM
     Dosage: 24.6 NG/KG/MIN CONTINUOUS
     Route: 042
     Dates: start: 20140609
  14. OPSUMIT [Concomitant]
     Active Substance: MACITENTAN

REACTIONS (22)
  - Catheter site swelling [Unknown]
  - Pyrexia [Unknown]
  - Catheter site urticaria [Unknown]
  - Device related infection [Unknown]
  - Catheter site inflammation [Unknown]
  - Catheter site erythema [Unknown]
  - Lymphadenopathy [Unknown]
  - Headache [Unknown]
  - Central venous catheterisation [Unknown]
  - Catheter site discharge [Unknown]
  - Catheter site rash [Unknown]
  - Catheter site warmth [Unknown]
  - Rash pruritic [Unknown]
  - Urticaria [Unknown]
  - Rash [Unknown]
  - Therapy cessation [Unknown]
  - Infusion site erythema [Unknown]
  - Catheter site erosion [Unknown]
  - Catheter site pruritus [Unknown]
  - Catheter site pain [Unknown]
  - Medical device site infection [Unknown]
  - Dermatitis allergic [Unknown]

NARRATIVE: CASE EVENT DATE: 20150414
